FAERS Safety Report 11469011 (Version 1)
Quarter: 2015Q3

REPORT INFORMATION
  Report Type: Spontaneous
  Country: US (occurrence: US)
  Receive Date: 20150908
  Receipt Date: 20150908
  Transmission Date: 20151125
  Serious: Yes (Death, Other)
  Sender: FDA-Public Use
  Company Number: US-PFIZER INC-2015238187

PATIENT
  Age: 16 Year
  Sex: Male

DRUGS (1)
  1. PHENYTOIN. [Suspect]
     Active Substance: PHENYTOIN
     Indication: SEIZURE
     Dosage: UNK
     Dates: start: 19680607, end: 19680710

REACTIONS (5)
  - Hepatic failure [Fatal]
  - Hepatic necrosis [Unknown]
  - Skin exfoliation [Unknown]
  - Coma hepatic [Unknown]
  - Drug-induced liver injury [Unknown]
